FAERS Safety Report 12473771 (Version 2)
Quarter: 2017Q3

REPORT INFORMATION
  Report Type: Spontaneous
  Country: DK (occurrence: DK)
  Receive Date: 20160616
  Receipt Date: 20170725
  Transmission Date: 20171127
  Serious: Yes (Other)
  Sender: FDA-Public Use
  Company Number: PHHY2016DK080277

PATIENT
  Age: 60 Year
  Sex: Male

DRUGS (1)
  1. VIBRADOX [Suspect]
     Active Substance: DOXYCYCLINE
     Indication: EPIDIDYMITIS
     Dosage: 100 MG, UNK
     Route: 065
     Dates: start: 20150819

REACTIONS (3)
  - Pemphigoid [Recovering/Resolving]
  - Gingival blister [Recovered/Resolved]
  - Oral mucosal exfoliation [Recovered/Resolved]

NARRATIVE: CASE EVENT DATE: 201508
